FAERS Safety Report 10978753 (Version 1)
Quarter: 2015Q2

REPORT INFORMATION
  Report Type: Spontaneous
  Country: SE (occurrence: SE)
  Receive Date: 20150402
  Receipt Date: 20150402
  Transmission Date: 20150821
  Serious: Yes (Disabling, Other)
  Sender: FDA-Public Use
  Company Number: SE-ELI_LILLY_AND_COMPANY-SE201503009904

PATIENT
  Age: 61 Year
  Sex: Female

DRUGS (1)
  1. RALOXIFENE HYDROCHLORIDE. [Suspect]
     Active Substance: RALOXIFENE HYDROCHLORIDE
     Indication: OSTEOPOROSIS
     Dosage: 60 MG, QD
     Route: 048
     Dates: start: 20000829, end: 2012

REACTIONS (7)
  - Alopecia [Recovering/Resolving]
  - Diarrhoea [Recovering/Resolving]
  - Fatigue [Recovering/Resolving]
  - Poor dental condition [Recovering/Resolving]
  - Nail disorder [Recovering/Resolving]
  - Lactose intolerance [Recovering/Resolving]
  - Infection susceptibility increased [Recovering/Resolving]

NARRATIVE: CASE EVENT DATE: 2000
